FAERS Safety Report 6071084-2 (Version None)
Quarter: 2009Q1

REPORT INFORMATION
  Report Type: 
  Country: None (occurrence: None)
  Receive Date: 20090209
  Receipt Date: 20081015
  Transmission Date: 20090719
  Serious: No
  Sender: FDA-Public Use
  Company Number: A0752862A

PATIENT
  Age: 55 Year
  Sex: Female

DRUGS (1)
  1. PAXIL CR [Suspect]
     Indication: DRUG USE FOR UNKNOWN INDICATION
     Route: 048

REACTIONS (1)
  - FEELING ABNORMAL [None]
